FAERS Safety Report 16877506 (Version 1)
Quarter: 2019Q4

REPORT INFORMATION
  Report Type: Spontaneous
  Country: US (occurrence: US)
  Receive Date: 20191002
  Receipt Date: 20191002
  Transmission Date: 20200122
  Serious: No
  Sender: FDA-Public Use
  Company Number: US-PFIZER INC-2019422255

PATIENT
  Age: 59 Year
  Sex: Male

DRUGS (1)
  1. INLYTA [Suspect]
     Active Substance: AXITINIB
     Indication: RENAL CANCER
     Dosage: 5 MG, 2X/DAY
     Route: 048
     Dates: start: 201905

REACTIONS (9)
  - Paraesthesia oral [Unknown]
  - Insomnia [Unknown]
  - Decreased appetite [Unknown]
  - Pruritus [Unknown]
  - Aphonia [Unknown]
  - Buccal mucosal roughening [Unknown]
  - Oral discomfort [Unknown]
  - Ageusia [Unknown]
  - Dysphonia [Unknown]
